FAERS Safety Report 21477373 (Version 1)
Quarter: 2022Q4

REPORT INFORMATION
  Report Type: Spontaneous
  Country: CN (occurrence: CN)
  Receive Date: 20221019
  Receipt Date: 20221019
  Transmission Date: 20230113
  Serious: Yes (Other)
  Sender: FDA-Public Use
  Company Number: CN-JNJFOC-20221030313

PATIENT
  Age: 37 Day
  Sex: Female
  Weight: 1.2 kg

DRUGS (2)
  1. MOTRIN INFANTS [Suspect]
     Active Substance: IBUPROFEN
     Indication: Patent ductus arteriosus
     Route: 045
     Dates: start: 20220928, end: 20220928
  2. MOTRIN INFANTS [Suspect]
     Active Substance: IBUPROFEN
     Route: 045
     Dates: start: 20220929, end: 20220930

REACTIONS (1)
  - Urinary retention [Recovering/Resolving]

NARRATIVE: CASE EVENT DATE: 20220928
